FAERS Safety Report 11148203 (Version 1)
Quarter: 2015Q2

REPORT INFORMATION
  Report Type: Spontaneous
  Country: CA (occurrence: None)
  Receive Date: 20150527
  Receipt Date: 20150527
  Transmission Date: 20150821
  Serious: Yes (Hospitalization)
  Sender: FDA-Public Use
  Company Number: KAD201505-001130

PATIENT
  Age: 59 Year
  Sex: Female

DRUGS (6)
  1. HOLKIRA PAK (OMBITASVIR, PARITAPREVIR, RITONAVIR, DASABUVIR) [Suspect]
     Active Substance: DASABUVIR\OMBITASVIR\PARITAPREVIR\RITONAVIR
     Indication: HEPATITIS C
     Dosage: 12.5/75/50 MG TABLETS ONCE DAILY AND 1 DASABUVIR 250 MG TABLET TWICE DAILY
     Route: 048
  2. SPIRONOLACTONE. [Concomitant]
     Active Substance: SPIRONOLACTONE
  3. ZOPICLONE [Concomitant]
     Active Substance: ZOPICLONE
  4. VITAMIN D (ERGOCALCIFEROL) [Concomitant]
     Active Substance: ERGOCALCIFEROL
  5. RIBAVIRIN (RIBAVIRIN) [Suspect]
     Active Substance: RIBAVIRIN
     Indication: HEPATITIS C
     Dosage: 500 MG, 2 IN 1 DAY (1000 MG)
     Route: 048
     Dates: start: 20150423
  6. FUROSEMIDE 40 MG [Concomitant]
     Active Substance: FUROSEMIDE

REACTIONS (2)
  - Vomiting [None]
  - Haematemesis [None]

NARRATIVE: CASE EVENT DATE: 20150426
